FAERS Safety Report 6437580-0 (Version None)
Quarter: 2009Q4

REPORT INFORMATION
  Report Type: 
  Country: None (occurrence: None)
  Receive Date: 20091109
  Receipt Date: 20091026
  Transmission Date: 20100525
  Serious: Yes (Hospitalization)
  Sender: FDA-Public Use
  Company Number: 1000009830

PATIENT
  Sex: Male
  Weight: 4.15 kg

DRUGS (1)
  1. ESCITALOPRAM [Suspect]
     Dosage: SEE IMAGE
     Route: 064
     Dates: end: 20091007

REACTIONS (3)
  - MATERNAL DRUGS AFFECTING FOETUS [None]
  - NEONATAL ASPIRATION [None]
  - POSTMATURE BABY [None]
